FAERS Safety Report 16068200 (Version 3)
Quarter: 2019Q1

REPORT INFORMATION
  Report Type: Spontaneous
  Country: US (occurrence: US)
  Receive Date: 20190313
  Receipt Date: 20190319
  Transmission Date: 20190418
  Serious: Yes (Other)
  Sender: FDA-Public Use
  Company Number: US-PFIZER INC-2019105641

PATIENT
  Age: 57 Year
  Sex: Male
  Weight: 68 kg

DRUGS (2)
  1. LYRICA [Suspect]
     Active Substance: PREGABALIN
     Indication: FIBROMYALGIA
     Dosage: 50 MG, THREE TIMES A DAY
     Route: 048
     Dates: end: 201902
  2. LYRICA [Suspect]
     Active Substance: PREGABALIN
     Dosage: 150 MG, THREE TIMES A DAY
     Route: 048
     Dates: start: 201902, end: 20190306

REACTIONS (12)
  - Incorrect dose administered [Unknown]
  - Gastric disorder [Not Recovered/Not Resolved]
  - Abdominal distension [Not Recovered/Not Resolved]
  - Flatulence [Not Recovered/Not Resolved]
  - Muscle spasms [Not Recovered/Not Resolved]
  - Malaise [Unknown]
  - Condition aggravated [Not Recovered/Not Resolved]
  - Mania [Unknown]
  - Pain [Not Recovered/Not Resolved]
  - Product dispensing error [Unknown]
  - Suicidal ideation [Unknown]
  - Condition aggravated [Unknown]

NARRATIVE: CASE EVENT DATE: 201902
